FAERS Safety Report 5802429-3 (Version None)
Quarter: 2008Q3

REPORT INFORMATION
  Report Type: 
  Country: None (occurrence: None)
  Receive Date: 20080708
  Receipt Date: 20080630
  Transmission Date: 20090109
  Serious: Yes (Hospitalization, Other)
  Sender: FDA-Public Use
  Company Number: SE-BAYER-200818321GPV

PATIENT
  Age: 18 Year
  Sex: Female

DRUGS (1)
  1. YASMIN [Suspect]
     Indication: POLYCYSTIC OVARIES
     Route: 048
     Dates: start: 20070801, end: 20080301

REACTIONS (6)
  - DYSPNOEA [None]
  - FATIGUE [None]
  - IRON DEFICIENCY ANAEMIA [None]
  - MUSCLE RUPTURE [None]
  - PAIN IN EXTREMITY [None]
  - PULMONARY EMBOLISM [None]
